FAERS Safety Report 6996608-X (Version None)
Quarter: 2010Q3

REPORT INFORMATION
  Report Type: 
  Country: None (occurrence: None)
  Receive Date: 20100918
  Receipt Date: 20090827
  Transmission Date: 20110219
  Serious: No
  Sender: FDA-Public Use
  Company Number: US-WYE-H09264509

PATIENT
  Sex: Female
  Weight: 83.08 kg

DRUGS (11)
  1. EFFEXOR XR [Suspect]
     Indication: HOT FLUSH
     Route: 048
     Dates: start: 20060101, end: 20081201
  2. EFFEXOR XR [Suspect]
     Route: 048
     Dates: start: 20081201, end: 20090201
  3. EFFEXOR XR [Suspect]
     Route: 048
     Dates: start: 20090201, end: 20090301
  4. EFFEXOR XR [Suspect]
     Route: 048
     Dates: start: 20090301, end: 20090101
  5. EFFEXOR XR [Suspect]
     Dosage: ^TAPERED DOWN AND SWITCHED TO EFFEOXR TABLETS^
     Route: 048
     Dates: start: 20090101, end: 20090101
  6. MOBIC [Concomitant]
  7. EFFEXOR [Suspect]
     Indication: HOT FLUSH
     Dosage: ^SPLIT TABLETS IN VERY SMALL DOSE^ AS PART OF TAPER
     Route: 048
     Dates: start: 20090101, end: 20090601
  8. NEXIUM [Concomitant]
  9. ATIVAN [Concomitant]
  10. METOPROLOL [Concomitant]
  11. PREMARIN [Concomitant]

REACTIONS (10)
  - ANXIETY [None]
  - APATHY [None]
  - DEPRESSION [None]
  - DRUG INEFFECTIVE FOR UNAPPROVED INDICATION [None]
  - DRUG WITHDRAWAL SYNDROME [None]
  - HALLUCINATION, VISUAL [None]
  - HYPERSOMNIA [None]
  - MOOD SWINGS [None]
  - TACHYCARDIA [None]
  - TREMOR [None]
